FAERS Safety Report 25316999 (Version 1)
Quarter: 2025Q2

REPORT INFORMATION
  Report Type: Report from Study
  Country: PT (occurrence: PT)
  Receive Date: 20250515
  Receipt Date: 20250515
  Transmission Date: 20250717
  Serious: Yes (Other)
  Sender: SERVIER
  Company Number: PT-SERVIER-S25006379

PATIENT

DRUGS (1)
  1. VORASIDENIB [Suspect]
     Active Substance: VORASIDENIB
     Indication: Product used for unknown indication
     Route: 048

REACTIONS (3)
  - Hepatotoxicity [Unknown]
  - Viral infection [Unknown]
  - Bacterial infection [Unknown]
